FAERS Safety Report 8133605-5 (Version None)
Quarter: 2012Q1

REPORT INFORMATION
  Report Type: 
  Country: None (occurrence: None)
  Receive Date: 20120213
  Receipt Date: 20120207
  Transmission Date: 20120608
  Serious: Yes (Other)
  Sender: FDA-Public Use
  Company Number: PHHY2012BR003110

PATIENT
  Sex: Female
  Weight: 73 kg

DRUGS (1)
  1. BUFFERIN [Suspect]
     Indication: THROMBOSIS
     Dosage: 1 DF, UNK
     Route: 048

REACTIONS (1)
  - TACHYCARDIA [None]
